FAERS Safety Report 8099696-5 (Version None)
Quarter: 2012Q1

REPORT INFORMATION
  Report Type: 
  Country: None (occurrence: None)
  Receive Date: 20120129
  Receipt Date: 20111007
  Transmission Date: 20120608
  Serious: No
  Sender: FDA-Public Use
  Company Number: US-ABBOTT-11P-163-0862341-00

PATIENT
  Age: 61 Year
  Sex: Female

DRUGS (4)
  1. HUMIRA [Suspect]
     Indication: CROHN'S DISEASE
     Dates: start: 20100506
  2. PHENERGAN [Concomitant]
     Indication: NAUSEA
  3. LISINOPRIL [Concomitant]
     Indication: HYPERTENSION
     Dosage: 10/12.5MG
  4. CLONAZEPAM [Concomitant]
     Indication: ANXIETY

REACTIONS (1)
  - INFLUENZA LIKE ILLNESS [None]
